FAERS Safety Report 6758121-4 (Version None)
Quarter: 2010Q2

REPORT INFORMATION
  Report Type: 
  Country: None (occurrence: None)
  Receive Date: 20100603
  Receipt Date: 20100517
  Transmission Date: 20101027
  Serious: Yes (Other)
  Sender: FDA-Public Use
  Company Number: 2010AP001013

PATIENT
  Age: 62 Year
  Sex: Male

DRUGS (2)
  1. RAMIPRIL [Suspect]
     Indication: HYPERTENSION
     Dosage: 2.5 MG; PO
     Route: 048
     Dates: start: 20100115, end: 20100211
  2. ALLOPURINOL [Concomitant]

REACTIONS (3)
  - DYSPNOEA [None]
  - LETHARGY [None]
  - PALPITATIONS [None]
